FAERS Safety Report 8903367 (Version 2)
Quarter: 2012Q4

REPORT INFORMATION
  Report Type: 
  Country: GB (occurrence: GB)
  Receive Date: 20121113
  Receipt Date: 20121231
  Transmission Date: 20130627
  Serious: Yes (Other)
  Sender: FDA-Public Use
  Company Number: PHHY2012GB104050

PATIENT
  Sex: Male

DRUGS (3)
  1. AMOXICILLIN [Suspect]
     Indication: ROAD TRAFFIC ACCIDENT
     Dosage: 1 DF, Q6H
     Route: 048
     Dates: start: 201209, end: 201210
  2. FLUCLOXACILLIN [Concomitant]
  3. PARACETAMOL [Concomitant]

REACTIONS (8)
  - Abnormal behaviour [Recovered/Resolved]
  - Aggression [Recovered/Resolved]
  - Memory impairment [Recovered/Resolved]
  - Agitation [Recovered/Resolved]
  - Insomnia [Recovered/Resolved]
  - Fatigue [Recovered/Resolved]
  - Rash [Recovered/Resolved]
  - Dizziness [Recovered/Resolved]
